FAERS Safety Report 10751522 (Version 1)
Quarter: 2015Q1

REPORT INFORMATION
  Report Type: Spontaneous
  Country: PL (occurrence: PL)
  Receive Date: 20150130
  Receipt Date: 20150130
  Transmission Date: 20150721
  Serious: Yes (Death, Other)
  Sender: FDA-Public Use
  Company Number: PL-CELGENE-POL-2015013276

PATIENT

DRUGS (9)
  1. BORTEZOMIB [Concomitant]
     Active Substance: BORTEZOMIB
     Indication: PLASMA CELL MYELOMA
     Route: 065
  2. PREDNISONE. [Concomitant]
     Active Substance: PREDNISONE
     Indication: PLASMA CELL MYELOMA
     Route: 065
  3. DEXAMETHASONE. [Concomitant]
     Active Substance: DEXAMETHASONE
     Indication: PLASMA CELL MYELOMA
     Route: 065
  4. REVLIMID [Suspect]
     Active Substance: LENALIDOMIDE
     Indication: PLASMA CELL MYELOMA
     Route: 048
  5. MELPHALAN [Concomitant]
     Active Substance: MELPHALAN
     Indication: PLASMA CELL MYELOMA
     Route: 065
  6. ASA [Concomitant]
     Active Substance: ASPIRIN
     Indication: PROPHYLAXIS
     Route: 065
  7. BENDAMUSTINE [Concomitant]
     Active Substance: BENDAMUSTINE
     Indication: PLASMA CELL MYELOMA
     Route: 065
  8. DOXORUBICIN [Concomitant]
     Active Substance: DOXORUBICIN
     Indication: PLASMA CELL MYELOMA
     Route: 065
  9. VINCRISTINE [Concomitant]
     Active Substance: VINCRISTINE
     Indication: PLASMA CELL MYELOMA
     Route: 065

REACTIONS (30)
  - Pneumonia [Fatal]
  - Cardiac tamponade [Fatal]
  - Respiratory failure [Fatal]
  - Epilepsy [Unknown]
  - Infection [Fatal]
  - Cardiac failure [Unknown]
  - Polyneuropathy [Unknown]
  - Diarrhoea infectious [Unknown]
  - Death [Fatal]
  - Haemorrhage [Fatal]
  - Cytomegalovirus infection [Unknown]
  - Anaemia [Unknown]
  - Infection [Unknown]
  - Plasma cell myeloma [Fatal]
  - Arrhythmia [Unknown]
  - Urinary tract infection [Unknown]
  - Pulmonary embolism [Fatal]
  - Neutropenia [Unknown]
  - Thrombocytopenia [Unknown]
  - Herpes zoster [Unknown]
  - Abscess [Unknown]
  - No therapeutic response [Unknown]
  - Liver disorder [Unknown]
  - Deep vein thrombosis [Unknown]
  - Septic shock [Fatal]
  - Cardiac arrest [Fatal]
  - Ischaemic stroke [Fatal]
  - Multi-organ failure [Fatal]
  - Bone marrow failure [Unknown]
  - Drug intolerance [Unknown]
